FAERS Safety Report 11004622 (Version 1)
Quarter: 2015Q2

REPORT INFORMATION
  Report Type: Spontaneous
  Country: ES (occurrence: ES)
  Receive Date: 20150409
  Receipt Date: 20150409
  Transmission Date: 20150821
  Serious: Yes (Hospitalization, Other)
  Sender: FDA-Public Use
  Company Number: ES-GILEAD-2015-0146604

PATIENT
  Sex: Male

DRUGS (2)
  1. SIMEPREVIR [Suspect]
     Active Substance: SIMEPREVIR
     Indication: HEPATITIS C
     Dosage: UNK
     Route: 065
     Dates: start: 20150316
  2. SOVALDI [Suspect]
     Active Substance: SOFOSBUVIR
     Indication: HEPATITIS C
     Dosage: UNK
     Route: 065
     Dates: start: 20150316

REACTIONS (6)
  - Malaise [Unknown]
  - Drooling [Unknown]
  - Encephalopathy [Unknown]
  - Amnesia [Unknown]
  - Unevaluable event [Unknown]
  - Disorientation [Unknown]

NARRATIVE: CASE EVENT DATE: 20150319
